FAERS Safety Report 9468566 (Version 1)
Quarter: 2013Q3

REPORT INFORMATION
  Report Type: Report from Study
  Country: ES (occurrence: ES)
  Receive Date: 20130821
  Receipt Date: 20130821
  Transmission Date: 20140515
  Serious: Yes (Other)
  Sender: FDA-Public Use
  Company Number: ES-GLAXOSMITHKLINE-B0915161A

PATIENT
  Age: 62 Year
  Sex: Female

DRUGS (7)
  1. DABRAFENIB [Suspect]
     Indication: MALIGNANT MELANOMA
     Dosage: 150MG TWICE PER DAY
     Dates: start: 20130517
  2. TRAMETINIB [Suspect]
     Indication: MALIGNANT MELANOMA
     Dosage: 2MG PER DAY
     Dates: start: 20130802
  3. PITAVASTATIN CALCIUM [Concomitant]
     Indication: HYPERCHOLESTEROLAEMIA
     Dosage: 4MG PER DAY
     Route: 048
  4. OMACOR [Concomitant]
     Indication: HYPERCHOLESTEROLAEMIA
     Route: 048
  5. SECALIP [Concomitant]
     Indication: HYPERTRIGLYCERIDAEMIA
     Dosage: 145MG PER DAY
     Route: 048
  6. LEVOTHYROXINE [Concomitant]
     Dosage: 75MG PER DAY
  7. ATORVASTATIN [Concomitant]
     Dosage: 10MG PER DAY

REACTIONS (2)
  - Hypercholesterolaemia [Unknown]
  - Hypertriglyceridaemia [Unknown]
